FAERS Safety Report 5216600-5 (Version None)
Quarter: 2006Q4

REPORT INFORMATION
  Report Type: 
  Country: None (occurrence: None)
  Receive Date: 20061130
  Receipt Date: 20060807
  Transmission Date: 20070319
  Serious: Yes (Hospitalization, Other)
  Sender: FDA-Public Use
  Company Number: US200608002410

PATIENT
  Age: 41 Year
  Sex: Male
  Weight: 97.1 kg

DRUGS (5)
  1. ZYPREXA [Suspect]
     Dosage: 10 MG
     Dates: start: 20030601, end: 20050101
  2. BUPROPION HCL [Concomitant]
  3. PAROXETINE HCL [Concomitant]
  4. SERTRALINE [Concomitant]
  5. EFFEXOR [Concomitant]

REACTIONS (3)
  - DIABETES MELLITUS [None]
  - DIABETIC COMA [None]
  - DIABETIC KETOACIDOSIS [None]
